FAERS Safety Report 20043068 (Version 1)
Quarter: 2021Q4

REPORT INFORMATION
  Report Type: Spontaneous
  Country: US (occurrence: None)
  Receive Date: 20211108
  Receipt Date: 20211108
  Transmission Date: 20220303
  Serious: Yes (Other)
  Sender: FDA-Public Use
  Company Number: US-ROCHE-2950016

PATIENT
  Sex: Female
  Weight: 81.720 kg

DRUGS (3)
  1. RITUXAN [Suspect]
     Active Substance: RITUXIMAB
     Indication: Systemic lupus erythematosus
     Dosage: 2 WEEKS APART EVERY 6 MONTHS
     Route: 042
     Dates: end: 2018
  2. RITUXAN [Suspect]
     Active Substance: RITUXIMAB
     Dosage: 2 WEEKS EVERY 4 MONTHS
     Route: 042
     Dates: start: 2018, end: 2019
  3. RITUXAN [Suspect]
     Active Substance: RITUXIMAB
     Route: 042
     Dates: start: 2019

REACTIONS (15)
  - Shrinking lung syndrome [Recovering/Resolving]
  - Pleurisy [Recovering/Resolving]
  - Inflammatory marker increased [Unknown]
  - Bursitis [Not Recovered/Not Resolved]
  - White blood cell disorder [Unknown]
  - Glomerular filtration rate decreased [Unknown]
  - Neuropathy peripheral [Not Recovered/Not Resolved]
  - COVID-19 [Recovered/Resolved]
  - Fatigue [Recovered/Resolved]
  - Decreased appetite [Recovered/Resolved]
  - Gait inability [Recovered/Resolved]
  - Incontinence [Recovered/Resolved]
  - Chest pain [Recovered/Resolved]
  - Myocarditis [Recovered/Resolved]
  - Off label use [Unknown]

NARRATIVE: CASE EVENT DATE: 20190101
